FAERS Safety Report 20751347 (Version 7)
Quarter: 2023Q1

REPORT INFORMATION
  Report Type: Spontaneous
  Country: US (occurrence: US)
  Receive Date: 20220426
  Receipt Date: 20230130
  Transmission Date: 20230418
  Serious: No
  Sender: FDA-Public Use
  Company Number: US-PFIZER INC-202101760945

PATIENT
  Age: 73 Year
  Sex: Female
  Weight: 70.4 kg

DRUGS (16)
  1. BRAFTOVI [Suspect]
     Active Substance: ENCORAFENIB
     Indication: Colon cancer
     Dosage: 300 MG, 1X/DAY
     Route: 048
     Dates: start: 20211208
  2. BRAFTOVI [Suspect]
     Active Substance: ENCORAFENIB
     Indication: Colorectal cancer metastatic
  3. PERIDEX [CHLORHEXIDINE GLUCONATE] [Concomitant]
     Dosage: 15 ML, 2X/DAY (SWISH AND SPIT 15 ML 2 TIMES A DAY)
  4. HYDRODIURIL [Concomitant]
     Active Substance: HYDROCHLOROTHIAZIDE
     Dosage: 25 MG, 1X/DAY
     Route: 048
  5. ANALPRAM HC [Concomitant]
     Active Substance: HYDROCORTISONE ACETATE\PRAMOXINE HYDROCHLORIDE
     Indication: Haemorrhoids
     Dosage: 1 ML, 2X/DAY (AS NEEDED)
     Route: 061
  6. ANALPRAM HC [Concomitant]
     Active Substance: HYDROCORTISONE ACETATE\PRAMOXINE HYDROCHLORIDE
     Dosage: UNK, AS NEEDED (MAY INSERT 3/4 INCH INTO RECTUM IF NEEDED)
     Route: 054
  7. HYDROCORTISONE [Concomitant]
     Active Substance: HYDROCORTISONE
     Indication: Acne
     Dosage: UNK, 2X/DAY
     Route: 061
  8. IMODIUM [Concomitant]
     Active Substance: LOPERAMIDE HYDROCHLORIDE
     Indication: Diarrhoea
     Dosage: UNK (TAKE 2 CAPS AT 1ST SIGN THEN 1 CAP EVERY 2HRS UNTILL NO DIARRHEA OR 12HRS
  9. ATIVAN [Concomitant]
     Active Substance: LORAZEPAM
     Indication: Chemotherapy
     Dosage: UNK (TAKE ONE TAB FOLLOWING CHROMOTHERAPY,REPEAT 6 HRS LATER)
  10. MAGNESIUM [Concomitant]
     Active Substance: MAGNESIUM
     Dosage: 400 MG, DAILY
     Route: 048
  11. DYNACIN [MINOCYCLINE HYDROCHLORIDE] [Concomitant]
     Dosage: 100 MG, 2X/DAY
     Route: 048
  12. K-DUR [Concomitant]
     Active Substance: POTASSIUM CHLORIDE
     Dosage: 10 MEQ, 2X/DAY
  13. REGLAN [Concomitant]
     Active Substance: METOCLOPRAMIDE HYDROCHLORIDE
     Dosage: 10 MG, 3X/DAY (PRN)
     Route: 061
  14. DEXAMETHASONE [Concomitant]
     Active Substance: DEXAMETHASONE
     Dosage: 0.5 MG, 3X/DAY (PRN)
     Route: 061
  15. ATIVAN [Concomitant]
     Active Substance: LORAZEPAM
     Dosage: 0.5 MG, 3X/DAY (PRN)
     Route: 061
  16. COMPAZINE [Concomitant]
     Active Substance: PROCHLORPERAZINE MALEATE
     Dosage: 1 DF, AS NEEDED (1 TAB (10 MG TOTAL) BY MOUTH EVERY 6 (SIX) HRS AS NEEDED)
     Route: 048

REACTIONS (3)
  - Visual impairment [Recovered/Resolved]
  - Dry eye [Unknown]
  - Mucosal dryness [Unknown]
